FAERS Safety Report 5159537-2 (Version None)
Quarter: 2006Q4

REPORT INFORMATION
  Report Type: 
  Country: None (occurrence: None)
  Receive Date: 20061120
  Receipt Date: 20061102
  Transmission Date: 20070319
  Serious: Yes (Life-Threatening, Other)
  Sender: FDA-Public Use
  Company Number: 2006RR-04378

PATIENT
  Age: 65 Year
  Sex: Male

DRUGS (1)
  1. METFORMIN HCL [Suspect]
     Indication: DIABETES MELLITUS
     Dosage: ORAL
     Route: 048

REACTIONS (4)
  - CHOKING SENSATION [None]
  - COUGH [None]
  - RASH [None]
  - WHEEZING [None]
